FAERS Safety Report 4918030-X (Version None)
Quarter: 2006Q1

REPORT INFORMATION
  Report Type: 
  Country: None (occurrence: None)
  Receive Date: 20060221
  Receipt Date: 20050930
  Transmission Date: 20060701
  Serious: Yes (Hospitalization, Disabling, Other)
  Sender: FDA-Public Use
  Company Number: US-MERCK-0510USA00729

PATIENT
  Age: 57 Year
  Sex: Male
  Weight: 134 kg

DRUGS (11)
  1. GLUCOPHAGE XR [Concomitant]
     Route: 065
  2. GLIPIZIDE [Concomitant]
     Route: 065
  3. HYDROCHLOROTHIAZIDE [Concomitant]
     Route: 065
  4. POTASSIUM CHLORIDE [Concomitant]
     Route: 065
  5. LEVAQUIN [Concomitant]
     Route: 065
  6. METHOCARBAMOL [Concomitant]
     Route: 065
  7. CYCLOBENZAPRINE HYDROCHLORIDE [Concomitant]
     Route: 065
  8. VIOXX [Suspect]
     Indication: PAIN
     Route: 048
     Dates: start: 20010418, end: 20040728
  9. ACCUPRIL [Concomitant]
     Route: 065
  10. AUGMENTIN '125' [Concomitant]
     Route: 065
  11. FUROSEMIDE [Concomitant]
     Route: 065

REACTIONS (11)
  - ANGIOPATHY [None]
  - BACK DISORDER [None]
  - BACK INJURY [None]
  - CEREBROVASCULAR ACCIDENT [None]
  - DIABETES MELLITUS NON-INSULIN-DEPENDENT [None]
  - DYSPNOEA [None]
  - HYPERTENSION [None]
  - ISCHAEMIC STROKE [None]
  - MYOCARDIAL INFARCTION [None]
  - OEDEMA PERIPHERAL [None]
  - VENOUS STASIS [None]
